FAERS Safety Report 12211621 (Version 3)
Quarter: 2016Q4

REPORT INFORMATION
  Report Type: Report from Study
  Country: None (occurrence: US)
  Receive Date: 20160325
  Receipt Date: 20161014
  Transmission Date: 20170207
  Serious: Yes (Hospitalization)
  Sender: FDA-Public Use
  Company Number: US-ABBVIE-16P-163-1587344-00

PATIENT
  Age: 67 Year
  Sex: Female
  Weight: 79 kg

DRUGS (21)
  1. BUDESONIDE ER [Concomitant]
     Indication: COLITIS ULCERATIVE
     Dates: start: 20150922, end: 20151208
  2. TUMS [Concomitant]
     Active Substance: CALCIUM CARBONATE
     Indication: DYSPEPSIA
     Route: 048
     Dates: start: 198711
  3. CEFDINIR. [Concomitant]
     Active Substance: CEFDINIR
     Indication: PNEUMONIA
     Route: 048
     Dates: start: 20160220, end: 20160221
  4. VITAMIN B12 [Concomitant]
     Active Substance: CYANOCOBALAMIN
     Indication: VITAMIN SUPPLEMENTATION
     Route: 048
     Dates: start: 201508
  5. ACYCLOVIR. [Concomitant]
     Active Substance: ACYCLOVIR
     Indication: COLITIS ULCERATIVE
     Route: 048
     Dates: start: 20160215, end: 20160221
  6. PROAIR HFA [Concomitant]
     Active Substance: ALBUTEROL SULFATE
     Indication: INFLUENZA
     Route: 055
     Dates: start: 20160219
  7. ENTOCORT EC [Concomitant]
     Active Substance: BUDESONIDE
     Route: 048
     Dates: start: 20151216, end: 20151222
  8. VITAMIN D3 [Concomitant]
     Active Substance: CHOLECALCIFEROL
     Indication: OSTEOPOROSIS
     Route: 048
     Dates: start: 201508
  9. ADVAIR DISKUS [Concomitant]
     Active Substance: FLUTICASONE PROPIONATE\SALMETEROL XINAFOATE
     Indication: COLITIS ULCERATIVE
     Dosage: 100/50
     Route: 055
     Dates: start: 20160320
  10. MECLIZINE [Concomitant]
     Active Substance: MECLIZINE HYDROCHLORIDE
     Indication: DIZZINESS
     Route: 048
     Dates: start: 20160105, end: 20160106
  11. PREPARATION H NOS [Concomitant]
     Active Substance: COCOA BUTTER\PETROLATUM\PHENYLEPHRINE HYDROCHLORIDE\PHENYLEPHRINE HYDROCHLORIDE OR MINERAL OIL
     Indication: HAEMORRHOIDS THROMBOSED
     Route: 061
     Dates: start: 20160119
  12. ADVAIR DISKUS [Concomitant]
     Active Substance: FLUTICASONE PROPIONATE\SALMETEROL XINAFOATE
     Indication: ASTHMA
     Dosage: DESKUS  100/50
     Route: 055
     Dates: start: 200112, end: 20160317
  13. TAMIFLU [Concomitant]
     Active Substance: OSELTAMIVIR PHOSPHATE
     Indication: INFLUENZA
     Route: 048
     Dates: start: 20160219, end: 20160224
  14. LIALDA [Concomitant]
     Active Substance: MESALAMINE
     Indication: COLITIS ULCERATIVE
     Route: 048
     Dates: start: 20150428
  15. ACYCLOVIR. [Concomitant]
     Active Substance: ACYCLOVIR
     Indication: HERPES ZOSTER
     Route: 048
     Dates: start: 20151218, end: 20151224
  16. ESCITALOPRAM OXALATE. [Concomitant]
     Active Substance: ESCITALOPRAM OXALATE
     Indication: DEPRESSION
     Route: 048
     Dates: start: 20160303
  17. HUMIRA [Suspect]
     Active Substance: ADALIMUMAB
     Indication: COLITIS ULCERATIVE
     Route: 058
     Dates: start: 20151110, end: 20160315
  18. ENTOCORT EC [Concomitant]
     Active Substance: BUDESONIDE
     Indication: PRODUCT USED FOR UNKNOWN INDICATION
     Dosage: TAPER
     Route: 048
     Dates: start: 20151209, end: 20151215
  19. AMBIEN [Concomitant]
     Active Substance: ZOLPIDEM TARTRATE
     Indication: INSOMNIA
     Route: 048
     Dates: start: 199712
  20. CALCIUM CARBONATE. [Concomitant]
     Active Substance: CALCIUM CARBONATE
     Indication: OSTEOPOROSIS
     Route: 048
     Dates: start: 201508
  21. TYLENOL [Concomitant]
     Active Substance: ACETAMINOPHEN
     Indication: PAIN
     Dates: start: 2000

REACTIONS (3)
  - Dehydration [Recovered/Resolved]
  - Colitis ulcerative [Recovered/Resolved]
  - Abdominal pain [Recovered/Resolved]

NARRATIVE: CASE EVENT DATE: 20160317
